FAERS Safety Report 8110054-7 (Version None)
Quarter: 2012Q1

REPORT INFORMATION
  Report Type: 
  Country: None (occurrence: None)
  Receive Date: 20120202
  Receipt Date: 20120104
  Transmission Date: 20120608
  Serious: Yes (Death)
  Sender: FDA-Public Use
  Company Number: US-COVIDIEN/TYCO HEALTHCARE/MALLINCKRODT-T201200398

PATIENT
  Age: 39 Year
  Sex: Female

DRUGS (10)
  1. TRAMADOL HCL [Suspect]
     Route: 048
  2. OMEPRAZOLE [Suspect]
     Route: 048
  3. VITAMIN D [Suspect]
     Route: 048
  4. ETHANOL [Suspect]
     Route: 048
  5. CHLORZOXAZONE [Suspect]
     Route: 048
  6. HYDROCODONE BITARTRATE AND ACETAMINOPHEN [Suspect]
     Route: 048
  7. FLUOXETINE [Suspect]
     Route: 048
  8. BENZONATATE [Suspect]
     Route: 048
  9. IRON [Suspect]
     Route: 048
  10. GABAPENTIN [Suspect]
     Route: 048

REACTIONS (1)
  - COMPLETED SUICIDE [None]
